FAERS Safety Report 9975927 (Version 3)
Quarter: 2014Q2

REPORT INFORMATION
  Report Type: Spontaneous
  Country: US (occurrence: US)
  Receive Date: 20140306
  Receipt Date: 20140422
  Transmission Date: 20141212
  Serious: No
  Sender: FDA-Public Use
  Company Number: US-009507513-1403USA000514

PATIENT
  Age: 59 Year
  Sex: Male
  Weight: 72.56 kg

DRUGS (16)
  1. ISENTRESS [Suspect]
     Indication: HIV INFECTION
     Dosage: 400 MG, 4 TO 6 HOURS APART
     Route: 048
     Dates: start: 20110119
  2. FERROUS SULFATE [Interacting]
     Dosage: 220 MG, QD
     Route: 048
  3. FERROUS SULFATE [Interacting]
     Dosage: 90 MG, QD
  4. EPZICOM [Concomitant]
     Indication: HIV INFECTION
     Dosage: REPORTED AS 200/300
     Route: 048
     Dates: start: 20110119
  5. INTELENCE [Concomitant]
     Indication: HIV INFECTION
     Dosage: UNK UNK, QD
     Route: 048
     Dates: start: 20110119
  6. AMLODIPINE [Concomitant]
     Indication: HYPERTENSION
     Dosage: 10 MG, QD
     Route: 048
     Dates: start: 201301
  7. DIOVAN [Concomitant]
     Indication: HYPERTENSION
     Dosage: 160 MG, QD
     Route: 048
     Dates: start: 201301
  8. WELCHOL [Concomitant]
     Indication: HYPERLIPIDAEMIA
     Dosage: 3750 MG, UNK
     Dates: start: 20120213
  9. POTASSIUM CITRATE [Concomitant]
     Indication: NEPHROLITHIASIS
     Dosage: 3240 MG, QD
     Route: 048
     Dates: start: 201001
  10. OMEPRAZOLE [Concomitant]
     Indication: GASTROOESOPHAGEAL REFLUX DISEASE
     Dosage: 20 MG, QD
     Route: 048
  11. MAGNESIUM OXIDE [Concomitant]
     Dosage: 400 MG, HS
     Route: 048
  12. UBIDECARENONE [Concomitant]
     Indication: INFLAMMATION
     Dosage: 60 MG, BID
     Route: 048
  13. VITAMIN E [Concomitant]
     Indication: COGNITIVE DISORDER
     Dosage: 400 IU, BID
     Route: 048
  14. VITAMIN D (UNSPECIFIED) [Concomitant]
     Indication: VITAMIN D DEFICIENCY
     Dosage: 5000 IU, BID
     Route: 048
  15. VITAMIN D (UNSPECIFIED) [Concomitant]
     Indication: OSTEOPENIA
  16. JUVENON [Concomitant]
     Indication: MITOCHONDRIAL TOXICITY
     Dosage: 2 CAPS BID
     Route: 048

REACTIONS (6)
  - Blood iron decreased [Recovering/Resolving]
  - Drug interaction [Recovered/Resolved]
  - Blood HIV RNA increased [Recovered/Resolved]
  - Serum ferritin decreased [Recovering/Resolving]
  - Haemoglobin decreased [Unknown]
  - Serum ferritin increased [Recovered/Resolved]
